FAERS Safety Report 6969533-8 (Version None)
Quarter: 2010Q3

REPORT INFORMATION
  Report Type: 
  Country: None (occurrence: None)
  Receive Date: 20100907
  Receipt Date: 20100907
  Transmission Date: 20110219
  Serious: Yes (Other)
  Sender: FDA-Public Use
  Company Number: None

PATIENT
  Age: 72 Year
  Sex: Female
  Weight: 58.9676 kg

DRUGS (1)
  1. RAD001 5MG EVEROLIMUS [Suspect]
     Indication: BREAST CANCER METASTATIC
     Dosage: 5MG 1 PO Q DAY
     Route: 048
     Dates: start: 20100818, end: 20100822

REACTIONS (3)
  - DRUG HYPERSENSITIVITY [None]
  - FACE OEDEMA [None]
  - LIP OEDEMA [None]
